FAERS Safety Report 26218000 (Version 1)
Quarter: 2025Q4

REPORT INFORMATION
  Report Type: Spontaneous
  Country: EU (occurrence: EU)
  Receive Date: 20251231
  Receipt Date: 20251231
  Transmission Date: 20260118
  Serious: Yes (Death, Hospitalization)
  Sender: NOVARTIS
  Company Number: EU-002147023-NVSC2025BG198420

PATIENT
  Age: 83 Year
  Sex: Female

DRUGS (1)
  1. PIQRAY [Suspect]
     Active Substance: ALPELISIB
     Indication: Breast cancer metastatic
     Dosage: 300 MG
     Route: 048
     Dates: start: 202511

REACTIONS (6)
  - Viral infection [Fatal]
  - Blood glucose increased [Fatal]
  - Rhinorrhoea [Fatal]
  - Chest pain [Fatal]
  - Cough [Fatal]
  - Pyrexia [Fatal]

NARRATIVE: CASE EVENT DATE: 20251101
